FAERS Safety Report 20820637 (Version 4)
Quarter: 2023Q1

REPORT INFORMATION
  Report Type: Spontaneous
  Country: US (occurrence: US)
  Receive Date: 20220512
  Receipt Date: 20230307
  Transmission Date: 20230418
  Serious: Yes (Other)
  Sender: FDA-Public Use
  Company Number: US-NOVARTISTESTPH-NVSC2022US108508

PATIENT
  Sex: Male

DRUGS (2)
  1. MEKINIST [Suspect]
     Active Substance: TRAMETINIB DIMETHYL SULFOXIDE
     Indication: Langerhans^ cell histiocytosis
     Dosage: 2 MG, QD (STRENGTH 2 MG)
     Route: 048
     Dates: start: 20220310
  2. MEKINIST [Suspect]
     Active Substance: TRAMETINIB DIMETHYL SULFOXIDE
     Dosage: 0.5 MG, QD (STRENGTH 0.5 MG)
     Route: 048
     Dates: start: 20230110

REACTIONS (4)
  - Cataract [Unknown]
  - Visual impairment [Unknown]
  - Rash [Unknown]
  - Product use in unapproved indication [Unknown]
